FAERS Safety Report 20029447 (Version 14)
Quarter: 2024Q1

REPORT INFORMATION
  Report Type: Spontaneous
  Country: US (occurrence: US)
  Receive Date: 20211103
  Receipt Date: 20240109
  Transmission Date: 20240409
  Serious: Yes (Other)
  Sender: FDA-Public Use
  Company Number: US-PFIZER INC-202101484581

PATIENT
  Age: 71 Year
  Sex: Male

DRUGS (6)
  1. RETACRIT [Suspect]
     Active Substance: EPOETIN ALFA-EPBX
     Indication: Anaemia
     Dosage: 10000 IU, DAILY
  2. RETACRIT [Suspect]
     Active Substance: EPOETIN ALFA-EPBX
     Indication: Renal transplant
     Dosage: 8000 IU, ONCE A WEEK
  3. RETACRIT [Suspect]
     Active Substance: EPOETIN ALFA-EPBX
     Indication: Nephrogenic anaemia
     Dosage: 0.8 ML (8000 UNITS), INTO THE SKIN ONCE A WEEK
     Route: 058
  4. RETACRIT [Suspect]
     Active Substance: EPOETIN ALFA-EPBX
     Dosage: 0.2 ML (8000 UNITS), INTO THE SKIN ONCE A WEEK
     Route: 058
  5. RETACRIT [Suspect]
     Active Substance: EPOETIN ALFA-EPBX
     Dosage: 40000 IU
  6. RETACRIT [Suspect]
     Active Substance: EPOETIN ALFA-EPBX
     Dosage: 8000 IU, WEEKLY
     Route: 058

REACTIONS (6)
  - Renal impairment [Unknown]
  - Platelet disorder [Unknown]
  - Full blood count abnormal [Unknown]
  - Drug ineffective [Unknown]
  - Product dose omission issue [Unknown]
  - Product prescribing issue [Unknown]
